FAERS Safety Report 4373396-7 (Version None)
Quarter: 2004Q2

REPORT INFORMATION
  Report Type: 
  Country: None (occurrence: None)
  Receive Date: 20040603
  Receipt Date: 20040521
  Transmission Date: 20050107
  Serious: Yes (Other)
  Sender: FDA-Public Use
  Company Number: 200412527BCC

PATIENT
  Sex: Male
  Weight: 81.6475 kg

DRUGS (3)
  1. ALEVE [Suspect]
     Indication: PAIN
     Dosage: 220-440 MG, IRR, ORAL
     Route: 048
     Dates: start: 20040101
  2. LIPITOR [Concomitant]
  3. HYTRIN [Concomitant]

REACTIONS (1)
  - BLOOD PRESSURE INCREASED [None]
